FAERS Safety Report 5241620-4 (Version None)
Quarter: 2007Q1

REPORT INFORMATION
  Report Type: 
  Country: None (occurrence: None)
  Receive Date: 20070215
  Receipt Date: 20070215
  Transmission Date: 20070707
  Serious: Yes (Other)
  Sender: FDA-Public Use
  Company Number: None

PATIENT
  Sex: Female
  Weight: 43.5453 kg

DRUGS (3)
  1. LEXAPRO [Suspect]
     Indication: PANIC DISORDER
     Dosage: 10 MG  ONCE DAILY  PO
     Route: 048
     Dates: start: 20060901, end: 20061015
  2. DIAZEPAM [Concomitant]
  3. LEXAPRO [Concomitant]

REACTIONS (3)
  - AMENORRHOEA [None]
  - DECREASED APPETITE [None]
  - WEIGHT DECREASED [None]
